FAERS Safety Report 11685411 (Version 1)
Quarter: 2015Q4

REPORT INFORMATION
  Report Type: Spontaneous
  Country: US (occurrence: None)
  Receive Date: 20151029
  Receipt Date: 20151029
  Transmission Date: 20160304
  Serious: Yes (Hospitalization)
  Sender: FDA-Public Use
  Company Number: None

PATIENT
  Age: 35 Year
  Sex: Female
  Weight: 54.89 kg

DRUGS (6)
  1. DILANTIN [Suspect]
     Active Substance: PHENYTOIN
  2. GILENYA [Suspect]
     Active Substance: FINGOLIMOD HYDROCHLORIDE
     Indication: MULTIPLE SCLEROSIS
     Route: 048
     Dates: start: 20150925
  3. ULTRAN [Concomitant]
     Active Substance: PHENAGLYCODOL
  4. TRAMDAOL [Concomitant]
  5. LEXAPRO [Concomitant]
     Active Substance: ESCITALOPRAM OXALATE
  6. XANAX [Concomitant]
     Active Substance: ALPRAZOLAM

REACTIONS (7)
  - Foaming at mouth [None]
  - Aggression [None]
  - Delirium [None]
  - Seizure [None]
  - Drug abuse [None]
  - Tremor [None]
  - Confusional state [None]

NARRATIVE: CASE EVENT DATE: 20151012
